FAERS Safety Report 7205023-5 (Version None)
Quarter: 2010Q4

REPORT INFORMATION
  Report Type: 
  Country: None (occurrence: None)
  Receive Date: 20101230
  Receipt Date: 20101222
  Transmission Date: 20110411
  Serious: Yes (Hospitalization)
  Sender: FDA-Public Use
  Company Number: JP-ABBOTT-10P-087-0676538-00

PATIENT
  Sex: Male
  Weight: 64 kg

DRUGS (13)
  1. HUMIRA [Suspect]
     Indication: COLITIS ULCERATIVE
     Route: 058
     Dates: start: 20090610, end: 20100929
  2. HUMIRA [Suspect]
     Route: 058
     Dates: start: 20101110
  3. PENTASA [Concomitant]
     Indication: COLITIS ULCERATIVE
     Route: 048
     Dates: start: 20080723, end: 20090325
  4. PENTASA [Concomitant]
     Route: 048
     Dates: start: 20090325, end: 20101021
  5. LAC B [Concomitant]
     Indication: COLITIS ULCERATIVE
     Route: 048
     Dates: start: 20070726, end: 20101001
  6. PREDNISOLONE [Concomitant]
     Indication: COLITIS ULCERATIVE
     Dosage: DOSE TITRATION
     Route: 048
     Dates: start: 20091029, end: 20100203
  7. PREDNISOLONE [Concomitant]
     Route: 048
     Dates: start: 20100609, end: 20100929
  8. PREDNISOLONE [Concomitant]
     Route: 048
     Dates: start: 20100929, end: 20100929
  9. PREDNISOLONE [Concomitant]
     Route: 048
     Dates: start: 20100930
  10. PREDNISOLONE [Concomitant]
     Route: 048
     Dates: start: 20101012
  11. GASTER D [Concomitant]
     Indication: GASTRITIS
     Route: 048
     Dates: start: 20070808
  12. MUCOSTA [Concomitant]
     Indication: GASTRITIS
     Route: 048
     Dates: start: 20090513
  13. LOXONIN [Concomitant]
     Indication: HEADACHE
     Route: 048

REACTIONS (1)
  - DRUG INTOLERANCE [None]
